FAERS Safety Report 5372219-7 (Version None)
Quarter: 2007Q2

REPORT INFORMATION
  Report Type: 
  Country: None (occurrence: None)
  Receive Date: 20070627
  Receipt Date: 20070620
  Transmission Date: 20071010
  Serious: Yes (Hospitalization)
  Sender: FDA-Public Use
  Company Number: B0476891A

PATIENT
  Age: 64 Year
  Sex: Male

DRUGS (6)
  1. KREDEX [Suspect]
     Indication: ESSENTIAL HYPERTENSION
     Route: 048
     Dates: start: 20070115, end: 20070404
  2. LASIX [Concomitant]
  3. PREVISCAN [Concomitant]
     Dates: start: 20070401
  4. PERINDOPRIL ERBUMINE [Concomitant]
  5. TENORMIN [Concomitant]
     Dates: start: 20061215
  6. ALDACTONE [Concomitant]

REACTIONS (3)
  - ANGIOPATHY [None]
  - OEDEMA PERIPHERAL [None]
  - PAIN IN EXTREMITY [None]
